FAERS Safety Report 11366589 (Version 1)
Quarter: 2015Q3

REPORT INFORMATION
  Report Type: Spontaneous
  Country: US (occurrence: US)
  Receive Date: 20150811
  Receipt Date: 20150811
  Transmission Date: 20151125
  Serious: No
  Sender: FDA-Public Use
  Company Number: US-ELI_LILLY_AND_COMPANY-US201303001391

PATIENT
  Sex: Male
  Weight: 115.19 kg

DRUGS (7)
  1. LAMICTAL [Concomitant]
     Active Substance: LAMOTRIGINE
  2. PRAVASTATIN [Concomitant]
     Active Substance: PRAVASTATIN\PRAVASTATIN SODIUM
  3. CYMBALTA [Concomitant]
     Active Substance: DULOXETINE HYDROCHLORIDE
  4. AXIRON [Suspect]
     Active Substance: TESTOSTERONE
     Dosage: 30 MG, QD
     Route: 061
     Dates: start: 20130228, end: 20130304
  5. OMEPRAZOLE. [Concomitant]
     Active Substance: OMEPRAZOLE
  6. CLONAZEPAM. [Concomitant]
     Active Substance: CLONAZEPAM
  7. DEPLIN [Concomitant]
     Active Substance: LEVOMEFOLATE CALCIUM

REACTIONS (2)
  - Blood testosterone decreased [Unknown]
  - Hypersensitivity [Recovered/Resolved]
